FAERS Safety Report 7515004-X (Version None)
Quarter: 2011Q2

REPORT INFORMATION
  Report Type: 
  Country: None (occurrence: None)
  Receive Date: 20110601
  Receipt Date: 20110519
  Transmission Date: 20111010
  Serious: Yes (Other)
  Sender: FDA-Public Use
  Company Number: PHFR2008GB01387

PATIENT
  Sex: Male

DRUGS (4)
  1. CLOZARIL [Suspect]
     Indication: SCHIZOPHRENIA
     Dosage: 550 MG, UNK
     Route: 048
     Dates: start: 19990601
  2. AMISULPRIDE [Suspect]
     Indication: SCHIZOPHRENIA
  3. HALOPERIDOL [Concomitant]
  4. FLUOXETINE [Concomitant]

REACTIONS (12)
  - HYPERHIDROSIS [None]
  - HEPATIC CIRRHOSIS [None]
  - ALANINE AMINOTRANSFERASE INCREASED [None]
  - NEUTROPHIL COUNT DECREASED [None]
  - HALLUCINATION, VISUAL [None]
  - BLOOD ALKALINE PHOSPHATASE INCREASED [None]
  - WHITE BLOOD CELL COUNT DECREASED [None]
  - ANTIPSYCHOTIC DRUG LEVEL INCREASED [None]
  - PLATELET COUNT DECREASED [None]
  - MENTAL DISORDER [None]
  - HEPATITIS C [None]
  - ABDOMINAL DISCOMFORT [None]
